FAERS Safety Report 4765279-5 (Version None)
Quarter: 2005Q3

REPORT INFORMATION
  Report Type: 
  Country: None (occurrence: None)
  Receive Date: 20050909
  Receipt Date: 20050314
  Transmission Date: 20060218
  Serious: Yes (Hospitalization, Disabling, Other)
  Sender: FDA-Public Use
  Company Number: US-MERCK-0503USA02958

PATIENT
  Age: 46 Year
  Sex: Male
  Weight: 90 kg

DRUGS (11)
  1. VIOXX [Suspect]
     Indication: PAIN
     Route: 048
     Dates: start: 20010120, end: 20040930
  2. VIOXX [Suspect]
     Route: 048
     Dates: start: 20010120, end: 20040930
  3. VIOXX [Suspect]
     Route: 048
     Dates: start: 20010120, end: 20040930
  4. VIOXX [Suspect]
     Route: 048
     Dates: start: 20010120, end: 20040930
  5. VIOXX [Suspect]
     Indication: INFLAMMATION
     Route: 048
     Dates: start: 20010120, end: 20040930
  6. VIOXX [Suspect]
     Route: 048
     Dates: start: 20010120, end: 20040930
  7. VIOXX [Suspect]
     Route: 048
     Dates: start: 20010120, end: 20040930
  8. VIOXX [Suspect]
     Route: 048
     Dates: start: 20010120, end: 20040930
  9. VICODIN [Concomitant]
     Route: 065
  10. ZETIA [Concomitant]
     Route: 065
  11. LOVENOX [Concomitant]
     Route: 065

REACTIONS (17)
  - ANGINA PECTORIS [None]
  - ANXIETY [None]
  - BENIGN PROSTATIC HYPERPLASIA [None]
  - CORONARY ARTERY DISEASE [None]
  - CORONARY ARTERY OCCLUSION [None]
  - DIABETES MELLITUS NON-INSULIN-DEPENDENT [None]
  - DYSLIPIDAEMIA [None]
  - DYSPEPSIA [None]
  - ERECTILE DYSFUNCTION [None]
  - GASTROOESOPHAGEAL REFLUX DISEASE [None]
  - HYPERCHOLESTEROLAEMIA [None]
  - HYPERTENSION [None]
  - JOINT INJURY [None]
  - LIMB INJURY [None]
  - MYOCARDIAL INFARCTION [None]
  - OVERDOSE [None]
  - PROSTATITIS [None]
